FAERS Safety Report 14780282 (Version 1)
Quarter: 2018Q2

REPORT INFORMATION
  Report Type: Spontaneous
  Country: US (occurrence: US)
  Receive Date: 20180419
  Receipt Date: 20180419
  Transmission Date: 20180711
  Serious: No
  Sender: FDA-Public Use
  Company Number: US-TEVA-2018-US-880953

PATIENT
  Sex: Female

DRUGS (1)
  1. PENICILLIN V POTASSIUM. [Suspect]
     Active Substance: PENICILLIN V POTASSIUM
     Dosage: DOSE STRENGTH:  250 MG/5 ML
     Route: 065

REACTIONS (2)
  - Dyspepsia [Unknown]
  - Bronchospasm [Unknown]
